FAERS Safety Report 20194264 (Version 1)
Quarter: 2021Q4

REPORT INFORMATION
  Report Type: Spontaneous
  Country: US (occurrence: None)
  Receive Date: 20211216
  Receipt Date: 20211216
  Transmission Date: 20220303
  Serious: Yes (Hospitalization, Other)
  Sender: FDA-Public Use
  Company Number: US-Hikma Pharmaceuticals USA Inc.-US-H14001-21-05263

PATIENT
  Sex: Male

DRUGS (1)
  1. CHLORPROMAZINE [Suspect]
     Active Substance: CHLORPROMAZINE
     Indication: Agitation
     Dosage: UNKNOWN
     Route: 030
     Dates: start: 20210921

REACTIONS (14)
  - Aggression [Unknown]
  - Concussion [Not Recovered/Not Resolved]
  - Intentional self-injury [Unknown]
  - Delusion [Unknown]
  - Hallucinations, mixed [Recovering/Resolving]
  - Near death experience [Recovering/Resolving]
  - Weight decreased [Unknown]
  - Confusional state [Unknown]
  - Memory impairment [Not Recovered/Not Resolved]
  - Head injury [Unknown]
  - Catatonia [Unknown]
  - Drug ineffective [Unknown]
  - Mental status changes [Unknown]
  - Brain injury [Not Recovered/Not Resolved]
